FAERS Safety Report 12896149 (Version 1)
Quarter: 2016Q4

REPORT INFORMATION
  Report Type: Spontaneous
  Country: US (occurrence: US)
  Receive Date: 20161031
  Receipt Date: 20161031
  Transmission Date: 20170207
  Serious: No
  Sender: FDA-Public Use
  Company Number: US-JAZZ-2016-US-016003

PATIENT
  Sex: Male

DRUGS (15)
  1. XYREM [Suspect]
     Active Substance: SODIUM OXYBATE
     Indication: NARCOLEPSY
     Dosage: 2.25 G, BID
     Route: 048
     Dates: start: 201402, end: 201402
  2. XYREM [Suspect]
     Active Substance: SODIUM OXYBATE
     Dosage: DOSE ADJUSTMENTS
     Route: 048
     Dates: start: 201402, end: 201603
  3. NORCO [Concomitant]
     Active Substance: ACETAMINOPHEN\HYDROCODONE BITARTRATE
  4. XYREM [Suspect]
     Active Substance: SODIUM OXYBATE
     Dosage: 4.5 G, BID
     Route: 048
     Dates: start: 201603
  5. BUTRANS [Concomitant]
     Active Substance: BUPRENORPHINE
  6. CELEXA [Concomitant]
     Active Substance: CITALOPRAM HYDROBROMIDE
  7. NUVIGIL [Concomitant]
     Active Substance: ARMODAFINIL
  8. TRAMADOL HCL [Concomitant]
     Active Substance: TRAMADOL HYDROCHLORIDE
  9. METHYLPHENIDATE ER [Concomitant]
     Active Substance: METHYLPHENIDATE
  10. GABAPENTIN. [Concomitant]
     Active Substance: GABAPENTIN
  11. HYDROCODONE/ACETAMINOPHEN [Concomitant]
     Active Substance: ACETAMINOPHEN\HYDROCODONE
  12. CLONAZEPAM. [Concomitant]
     Active Substance: CLONAZEPAM
  13. IBUPROFEN. [Concomitant]
     Active Substance: IBUPROFEN
  14. CYCLOBENZAPRINE [Concomitant]
     Active Substance: CYCLOBENZAPRINE
  15. BACLOFEN. [Concomitant]
     Active Substance: BACLOFEN

REACTIONS (2)
  - Muscular weakness [Not Recovered/Not Resolved]
  - Neuralgia [Not Recovered/Not Resolved]
